FAERS Safety Report 17520039 (Version 1)
Quarter: 2020Q1

REPORT INFORMATION
  Report Type: Spontaneous
  Country: US (occurrence: US)
  Receive Date: 20200310
  Receipt Date: 20200310
  Transmission Date: 20200409
  Serious: No
  Sender: FDA-Public Use
  Company Number: None

PATIENT
  Age: 13 Year
  Sex: Male
  Weight: 65.25 kg

DRUGS (2)
  1. MONTELUKAST [Suspect]
     Active Substance: MONTELUKAST SODIUM
     Indication: HYPERSENSITIVITY
     Dosage: ?          QUANTITY:30 CAPSULE(S);?
     Route: 048
     Dates: start: 20200109, end: 20200225
  2. CAPSULE [Concomitant]

REACTIONS (5)
  - Crying [None]
  - Emotional disorder [None]
  - Irritability [None]
  - Anger [None]
  - Mood altered [None]

NARRATIVE: CASE EVENT DATE: 20200109
